FAERS Safety Report 8277957-4 (Version None)
Quarter: 2012Q2

REPORT INFORMATION
  Report Type: 
  Country: None (occurrence: None)
  Receive Date: 20120412
  Receipt Date: 20120405
  Transmission Date: 20120825
  Serious: Yes (Hospitalization)
  Sender: FDA-Public Use
  Company Number: US-VERTEX PHARMACEUTICALS INC.-AE-2012-002897

PATIENT
  Sex: Female
  Weight: 78.996 kg

DRUGS (3)
  1. INCIVEK [Suspect]
     Indication: HEPATITIS C
     Route: 048
     Dates: start: 20120224, end: 20120224
  2. PEGASYS [Concomitant]
     Indication: HEPATITIS C
     Route: 058
     Dates: start: 20120224, end: 20120224
  3. RIBAVIRIN [Concomitant]
     Indication: HEPATITIS C
     Route: 048
     Dates: start: 20120224, end: 20120224

REACTIONS (7)
  - VOMITING [None]
  - DIARRHOEA [None]
  - CHILLS [None]
  - COUGH [None]
  - ASTHENIA [None]
  - NAUSEA [None]
  - DEHYDRATION [None]
